FAERS Safety Report 20775946 (Version 1)
Quarter: 2022Q2

REPORT INFORMATION
  Report Type: Report from Study
  Country: US (occurrence: US)
  Receive Date: 20220502
  Receipt Date: 20220502
  Transmission Date: 20220720
  Serious: Yes (Hospitalization)
  Sender: FDA-Public Use
  Company Number: US-Accord-262272

PATIENT
  Sex: Male

DRUGS (1)
  1. CLOZAPINE [Suspect]
     Active Substance: CLOZAPINE
     Indication: Product used for unknown indication
     Dosage: STARTED CLOZAPINE AGAIN WHILE INPATIENT ON 15-APR-2022

REACTIONS (3)
  - Hyperchloraemia [Unknown]
  - Product dose omission issue [Unknown]
  - End stage renal disease [Unknown]
